FAERS Safety Report 4499801-3 (Version None)
Quarter: 2004Q4

REPORT INFORMATION
  Report Type: 
  Country: None (occurrence: None)
  Receive Date: 20041104
  Receipt Date: 20041020
  Transmission Date: 20050328
  Serious: Yes (Hospitalization)
  Sender: FDA-Public Use
  Company Number: 601591

PATIENT
  Age: 16 Year
  Sex: Male

DRUGS (1)
  1. RECOMBINATE [Suspect]
     Indication: FACTOR VIII DEFICIENCY
     Dosage: 2000 UNITS;PRN;INTRAVENOUS
     Route: 042
     Dates: start: 19880323, end: 20040909

REACTIONS (1)
  - FACTOR VIII INHIBITION [None]
